FAERS Safety Report 6621890-8 (Version None)
Quarter: 2010Q1

REPORT INFORMATION
  Report Type: 
  Country: None (occurrence: None)
  Receive Date: 20100304
  Receipt Date: 20100220
  Transmission Date: 20100710
  Serious: Yes (Other)
  Sender: FDA-Public Use
  Company Number: 007445

PATIENT
  Sex: Male
  Weight: 64 kg

DRUGS (4)
  1. KEPPRA [Suspect]
     Dosage: (3500 MG ORAL)
     Route: 048
     Dates: start: 20100220
  2. LUMINAL /00023201/ (LUMINAL) (NOT SPECIFIED) [Suspect]
     Dosage: (100 MG QD ORAL)
     Route: 048
     Dates: start: 20100220
  3. OLANZAPINE [Suspect]
     Dosage: (2.5 MG ORAL)
     Route: 048
     Dates: start: 20100220
  4. OXCARBAZEPINE [Suspect]
     Dosage: (2400 MG ORAL)
     Route: 048
     Dates: start: 20100220

REACTIONS (1)
  - INCORRECT DOSE ADMINISTERED [None]
